FAERS Safety Report 22876437 (Version 2)
Quarter: 2023Q4

REPORT INFORMATION
  Report Type: Spontaneous
  Country: GB (occurrence: GB)
  Receive Date: 20230829
  Receipt Date: 20231026
  Transmission Date: 20240110
  Serious: Yes (Other)
  Sender: FDA-Public Use
  Company Number: GB-SA-SAC20230828000466

PATIENT
  Age: 60 Year

DRUGS (1)
  1. DUPIXENT [Suspect]
     Active Substance: DUPILUMAB
     Indication: Asthma
     Dosage: UNK
     Route: 065
     Dates: start: 202305, end: 2023

REACTIONS (1)
  - Rheumatoid arthritis [Recovered/Resolved with Sequelae]

NARRATIVE: CASE EVENT DATE: 20230901
